FAERS Safety Report 9287905 (Version 1)
Quarter: 2013Q2

REPORT INFORMATION
  Report Type: Spontaneous
  Country: US (occurrence: US)
  Receive Date: 20130514
  Receipt Date: 20130514
  Transmission Date: 20140414
  Serious: Yes (Other)
  Sender: FDA-Public Use
  Company Number: US-AMGEN-USASP2013032498

PATIENT
  Age: 53 Year
  Sex: Female
  Weight: 70.75 kg

DRUGS (4)
  1. ENBREL [Suspect]
     Indication: PRODUCT USED FOR UNKNOWN INDICATION
     Dosage: 50 MG, QWK
     Route: 058
     Dates: start: 201303, end: 201304
  2. METHOTREXATE [Concomitant]
     Dosage: UNK
  3. FOLIC ACID [Concomitant]
     Dosage: UNK
  4. PLAQUENIL                          /00072603/ [Concomitant]
     Dosage: UNK

REACTIONS (3)
  - Urinary tract infection [Unknown]
  - Headache [Unknown]
  - Nausea [Unknown]
